FAERS Safety Report 5314091-7 (Version None)
Quarter: 2007Q2

REPORT INFORMATION
  Report Type: 
  Country: None (occurrence: None)
  Receive Date: 20070501
  Receipt Date: 20070419
  Transmission Date: 20071010
  Serious: Yes (Other)
  Sender: FDA-Public Use
  Company Number: GB-PFIZER INC-2007032598

PATIENT

DRUGS (1)
  1. CABASER [Suspect]

REACTIONS (1)
  - SOFT TISSUE DISORDER [None]
